FAERS Safety Report 4535687-6 (Version None)
Quarter: 2004Q4

REPORT INFORMATION
  Report Type: 
  Country: None (occurrence: None)
  Receive Date: 20041223
  Receipt Date: 20031118
  Transmission Date: 20050328
  Serious: No
  Sender: FDA-Public Use
  Company Number: US-GLAXOSMITHKLINE-A0440201A

PATIENT
  Age: 59 Year
  Sex: Female

DRUGS (3)
  1. FLONASE [Suspect]
     Dosage: 2SPR TWICE PER DAY
     Route: 045
  2. TAMOXIFEN CITRATE [Concomitant]
  3. LIPITOR [Concomitant]

REACTIONS (3)
  - EYE IRRITATION [None]
  - ROSACEA [None]
  - THERMAL BURN [None]
